FAERS Safety Report 25734119 (Version 1)
Quarter: 2025Q3

REPORT INFORMATION
  Report Type: Other
  Country: CA (occurrence: CA)
  Receive Date: 20250828
  Receipt Date: 20250828
  Transmission Date: 20251021
  Serious: Yes (Other)
  Sender: APOTEX
  Company Number: CA-PGRTD-E2B_07964450

PATIENT
  Age: 22 Year
  Sex: Male

DRUGS (2)
  1. FLUVOXAMINE [Suspect]
     Active Substance: FLUVOXAMINE
     Indication: Product used for unknown indication
     Route: 065
  2. CLOZARIL [Suspect]
     Active Substance: CLOZAPINE
     Indication: Product used for unknown indication
     Route: 048

REACTIONS (6)
  - Labelled drug-drug interaction issue [Unknown]
  - Electrocardiogram T wave abnormal [Unknown]
  - Confusional state [Unknown]
  - Ischaemia [Unknown]
  - Infarction [Unknown]
  - Sedation [Unknown]
